FAERS Safety Report 4459014-8 (Version None)
Quarter: 2004Q3

REPORT INFORMATION
  Report Type: 
  Country: None (occurrence: None)
  Receive Date: 20040927
  Receipt Date: 20040629
  Transmission Date: 20050211
  Serious: No
  Sender: FDA-Public Use
  Company Number: US-BRISTOL-MYERS SQUIBB COMPANY-12629283

PATIENT
  Sex: Female

DRUGS (3)
  1. PARAPLATIN [Suspect]
     Indication: BREAST CANCER METASTATIC
  2. METHOTREXATE [Suspect]
     Indication: BREAST CANCER METASTATIC
  3. DOXIL [Suspect]
     Indication: BREAST CANCER METASTATIC
     Route: 042

REACTIONS (1)
  - BLOOD BILIRUBIN INCREASED [None]
